FAERS Safety Report 15222162 (Version 3)
Quarter: 2018Q4

REPORT INFORMATION
  Report Type: Spontaneous
  Country: AU (occurrence: AU)
  Receive Date: 20180731
  Receipt Date: 20181123
  Transmission Date: 20190204
  Serious: Yes (Hospitalization)
  Sender: FDA-Public Use
  Company Number: PHHY2018AU056336

PATIENT
  Age: 3 Year
  Sex: Female
  Weight: 20.8 kg

DRUGS (3)
  1. TAFINLAR [Suspect]
     Active Substance: DABRAFENIB MESYLATE
     Indication: GANGLIOGLIOMA
     Dosage: 50 MG, BID
     Route: 048
     Dates: start: 201705, end: 201806
  2. TAFINLAR [Suspect]
     Active Substance: DABRAFENIB MESYLATE
     Dosage: UNK
     Route: 048
     Dates: start: 20180710
  3. MEKINIST [Suspect]
     Active Substance: TRAMETINIB DIMETHYL SULFOXIDE
     Indication: GANGLIOGLIOMA
     Dosage: 0.7 MG, QD,(0.032MG/KG GIVEN IN 2 DIVIDED DOSES 6 MONTHS )
     Route: 065

REACTIONS (4)
  - Decreased appetite [Recovering/Resolving]
  - Metastases to spine [Recovered/Resolved]
  - Fatigue [Recovering/Resolving]
  - Recurrent cancer [Recovered/Resolved]

NARRATIVE: CASE EVENT DATE: 20180701
